FAERS Safety Report 9760774 (Version 1)
Quarter: 2013Q4

REPORT INFORMATION
  Report Type: Spontaneous
  Country: US (occurrence: US)
  Receive Date: 20131216
  Receipt Date: 20131216
  Transmission Date: 20140711
  Serious: No
  Sender: FDA-Public Use
  Company Number: US-BIOGENIDEC-2013BI102102

PATIENT
  Age: 68 Year
  Sex: Female

DRUGS (12)
  1. TECFIDERA [Suspect]
     Indication: MULTIPLE SCLEROSIS
     Route: 048
     Dates: start: 20130825
  2. LIPITOR [Concomitant]
  3. ROBAXIN [Concomitant]
  4. GABAPENTIN [Concomitant]
  5. LISINOPRIL [Concomitant]
  6. NEXIUM [Concomitant]
  7. OXYBUTYNIN [Concomitant]
  8. ZETIA [Concomitant]
  9. ALEVE [Concomitant]
  10. VITAMIN D3 [Concomitant]
  11. ASPIRIN [Concomitant]
  12. COSAMIN [Concomitant]

REACTIONS (1)
  - Nausea [Recovered/Resolved]
